FAERS Safety Report 5149948-3 (Version None)
Quarter: 2006Q4

REPORT INFORMATION
  Report Type: 
  Country: None (occurrence: None)
  Receive Date: 20061108
  Receipt Date: 20061025
  Transmission Date: 20070319
  Serious: Yes (Hospitalization, Disabling, Other)
  Sender: FDA-Public Use
  Company Number: 2006129661

PATIENT
  Age: 52 Year
  Sex: Female
  Weight: 66.6788 kg

DRUGS (9)
  1. LIPITOR [Suspect]
     Indication: BLOOD TRIGLYCERIDES
     Dosage: 10 MG (10 MG, 1 IN 1 D)
     Dates: end: 20060601
  2. METHOTREXATE [Concomitant]
  3. PAXIL [Concomitant]
  4. PREDNISONE TAB [Concomitant]
  5. CELLCEPT [Concomitant]
  6. DYAZIDE [Concomitant]
  7. NIACIN [Concomitant]
  8. CALCIUM (CALCIUM) [Concomitant]
  9. ASPIRIN [Concomitant]

REACTIONS (14)
  - ANGIOPATHY [None]
  - BLINDNESS [None]
  - BLOOD TRIGLYCERIDES INCREASED [None]
  - CONVULSION [None]
  - DRUG INEFFECTIVE [None]
  - EYE PAIN [None]
  - FIBROMYALGIA [None]
  - IMMUNE SYSTEM DISORDER [None]
  - MIGRAINE [None]
  - MYALGIA [None]
  - RETINAL VASCULITIS [None]
  - SUICIDE ATTEMPT [None]
  - TENDON PAIN [None]
  - VASCULITIS [None]
